FAERS Safety Report 5480570-5 (Version None)
Quarter: 2007Q4

REPORT INFORMATION
  Report Type: 
  Country: None (occurrence: None)
  Receive Date: 20071009
  Receipt Date: 20071005
  Transmission Date: 20080405
  Serious: Yes (Other)
  Sender: FDA-Public Use
  Company Number: B0488822A

PATIENT
  Age: 79 Year
  Sex: Female
  Weight: 31 kg

DRUGS (1)
  1. ARIXTRA [Suspect]
     Indication: THROMBOSIS PROPHYLAXIS
     Dosage: 1.5MG PER DAY
     Route: 058
     Dates: start: 20070905, end: 20070918

REACTIONS (2)
  - HAEMORRHAGIC ANAEMIA [None]
  - POST PROCEDURAL HAEMORRHAGE [None]
